FAERS Safety Report 7131301 (Version 5)
Quarter: 2013Q4

REPORT INFORMATION
  Report Type: Report from Study
  Country: DE (occurrence: DE)
  Receive Date: 20090925
  Receipt Date: 20131017
  Transmission Date: 20140711
  Serious: Yes (Hospitalization, Other)
  Sender: FDA-Public Use
  Company Number: DE-BRISTOL-MYERS SQUIBB COMPANY-14791289

PATIENT
  Age: 60 Year
  Sex: Male

DRUGS (8)
  1. CETUXIMAB [Suspect]
     Indication: COLORECTAL CANCER
     Dosage: CETUXIMAB 5 MG/ML.?1DF=5 MG/ML:INT 2SEP08
     Route: 042
     Dates: start: 20080513
  2. OXALIPLATIN [Suspect]
     Indication: COLORECTAL CANCER
     Dosage: RECENT INF 2SEP08
     Route: 042
     Dates: start: 20080513
  3. FLUOROURACIL [Suspect]
     Indication: COLORECTAL CANCER
     Dosage: RECENT INF 2SEP08
     Route: 042
     Dates: start: 20080513
  4. FOLINIC ACID [Suspect]
     Indication: COLORECTAL CANCER
     Dosage: RECENT INF 2SEP08
     Route: 042
     Dates: start: 20080513
  5. EMEND [Concomitant]
     Route: 065
     Dates: start: 20080513
  6. TAVEGIL [Concomitant]
     Route: 065
     Dates: start: 20080513
  7. ONDANSETRON [Concomitant]
     Dates: start: 20080513
  8. METOCLOPRAMIDE [Concomitant]
     Dates: start: 20080513

REACTIONS (2)
  - Neutropenia [Recovered/Resolved]
  - Agranulocytosis [Recovered/Resolved]
